FAERS Safety Report 21413434 (Version 1)
Quarter: 2022Q4

REPORT INFORMATION
  Report Type: Spontaneous
  Country: US (occurrence: None)
  Receive Date: 20221006
  Receipt Date: 20221006
  Transmission Date: 20230113
  Serious: Yes (Hospitalization)
  Sender: FDA-Public Use
  Company Number: US-ROCHE-3189749

PATIENT
  Sex: Female

DRUGS (1)
  1. ENSPRYNG [Suspect]
     Active Substance: SATRALIZUMAB-MWGE
     Indication: Neuromyelitis optica spectrum disorder
     Dosage: PATIENT HAS BEEN ON THIS MEDICATION FOR ONE YEAR ,ONGOING: YES
     Route: 058

REACTIONS (3)
  - Osteitis [Recovering/Resolving]
  - Ill-defined disorder [Recovering/Resolving]
  - Balance disorder [Recovering/Resolving]
